FAERS Safety Report 23692389 (Version 3)
Quarter: 2024Q4

REPORT INFORMATION
  Report Type: Report from Study
  Country: DE (occurrence: DE)
  Receive Date: 20240401
  Receipt Date: 20241018
  Transmission Date: 20250115
  Serious: Yes (Hospitalization, Other)
  Sender: PFIZER
  Company Number: DE-ABBVIE-5675362

PATIENT
  Age: 71 Year
  Sex: Male

DRUGS (5)
  1. METHOTREXATE SODIUM [Suspect]
     Active Substance: METHOTREXATE SODIUM
     Dosage: 20 MG
     Route: 065
  2. METHOTREXATE SODIUM [Suspect]
     Active Substance: METHOTREXATE SODIUM
     Dosage: 15 MG
     Route: 065
  3. RINVOQ [Suspect]
     Active Substance: UPADACITINIB
     Indication: Rheumatoid arthritis
     Dosage: 15 MG, 1X/DAY
     Route: 048
     Dates: start: 20221108, end: 20230606
  4. RINVOQ [Suspect]
     Active Substance: UPADACITINIB
     Dosage: 15 MG
     Route: 048
     Dates: start: 202005, end: 202210
  5. ADALIMUMAB [Concomitant]
     Active Substance: ADALIMUMAB
     Dosage: 40 MG
     Dates: start: 20230628, end: 20230901

REACTIONS (4)
  - Myelodysplastic syndrome unclassifiable [Not Recovered/Not Resolved]
  - Myeloproliferative neoplasm [Unknown]
  - Anaemia [Unknown]
  - Fibrosis [Unknown]

NARRATIVE: CASE EVENT DATE: 20221201
